FAERS Safety Report 9759699 (Version 1)
Quarter: 2013Q4

REPORT INFORMATION
  Report Type: Spontaneous
  Country: US (occurrence: US)
  Receive Date: 20131216
  Receipt Date: 20131216
  Transmission Date: 20140711
  Serious: Yes (Hospitalization)
  Sender: FDA-Public Use
  Company Number: US-GILEAD-2010-0028713

PATIENT
  Age: 54 Year
  Sex: Male
  Weight: 69.5 kg

DRUGS (4)
  1. LETAIRIS [Suspect]
     Indication: PULMONARY ARTERIAL HYPERTENSION
     Route: 048
     Dates: start: 20090311
  2. SPIRONOLACTONE [Concomitant]
  3. LASIX [Concomitant]
  4. COREG [Concomitant]

REACTIONS (1)
  - Local swelling [Recovering/Resolving]
